FAERS Safety Report 21591885 (Version 3)
Quarter: 2025Q3

REPORT INFORMATION
  Report Type: Report from Study
  Country: US (occurrence: US)
  Receive Date: 20221114
  Receipt Date: 20250710
  Transmission Date: 20251020
  Serious: Yes (Hospitalization, Other)
  Sender: JAZZ
  Company Number: US-GW PHARMA-2022-US-034743

PATIENT
  Sex: Female

DRUGS (3)
  1. EPIDIOLEX [Suspect]
     Active Substance: CANNABIDIOL
     Indication: Lennox-Gastaut syndrome
     Dosage: 4 MILLILITER, BID
     Dates: start: 202205
  2. EPIDIOLEX [Suspect]
     Active Substance: CANNABIDIOL
     Indication: Epilepsy
  3. EPIDIOLEX [Suspect]
     Active Substance: CANNABIDIOL
     Indication: Status epilepticus

REACTIONS (3)
  - Abdominal discomfort [Unknown]
  - Intestinal obstruction [Unknown]
  - Product administration interrupted [Unknown]
